FAERS Safety Report 8114231 (Version 3)
Quarter: 2013Q2

REPORT INFORMATION
  Report Type: Spontaneous
  Country: AU (occurrence: AU)
  Receive Date: 20110831
  Receipt Date: 20130527
  Transmission Date: 20140414
  Serious: Yes (Other)
  Sender: FDA-Public Use
  Company Number: AU-PFIZER INC-2011199936

PATIENT
  Sex: Male

DRUGS (3)
  1. EFEXOR XR [Suspect]
     Indication: ANXIETY
     Dosage: 75MG DAILY
     Route: 064
     Dates: start: 20050601
  2. EFEXOR XR [Suspect]
     Indication: DEPRESSION
  3. ZOFRAN [Concomitant]
     Indication: VOMITING
     Dosage: 4MG DAILY
     Route: 064
     Dates: start: 20080116, end: 20080320

REACTIONS (10)
  - Maternal exposure timing unspecified [Unknown]
  - Developmental delay [Unknown]
  - Foetal distress syndrome [Unknown]
  - Premature baby [Unknown]
  - Hypopnoea [Unknown]
  - Feeding disorder neonatal [Unknown]
  - Lethargy [Unknown]
  - Educational problem [Unknown]
  - Speech disorder [Unknown]
  - Large for dates baby [Unknown]
